FAERS Safety Report 13307326 (Version 1)
Quarter: 2017Q1

REPORT INFORMATION
  Report Type: Spontaneous
  Country: FR (occurrence: FR)
  Receive Date: 20170308
  Receipt Date: 20170308
  Transmission Date: 20170428
  Serious: Yes (Other)
  Sender: FDA-Public Use
  Company Number: FR-PFIZER INC-2017091344

PATIENT
  Age: 41 Year
  Sex: Female

DRUGS (14)
  1. SOLUPRED [Suspect]
     Active Substance: PREDNISOLONE
     Dosage: UNK
  2. AMLOR [Concomitant]
     Active Substance: AMLODIPINE BESYLATE
     Dosage: UNK
  3. URSOLVAN [Concomitant]
     Active Substance: URSODIOL
     Dosage: UNK
  4. ZOPHREN [Concomitant]
     Active Substance: ONDANSETRON
     Dosage: UNK
  5. XANAX [Concomitant]
     Active Substance: ALPRAZOLAM
     Dosage: UNK
  6. NEORAL [Suspect]
     Active Substance: CYCLOSPORINE
     Dosage: UNK
  7. AMOXICILLIN. [Concomitant]
     Active Substance: AMOXICILLIN
     Dosage: UNK
  8. ZITHROMAX [Suspect]
     Active Substance: AZITHROMYCIN DIHYDRATE
     Dosage: UNK
  9. AMBISOME [Suspect]
     Active Substance: AMPHOTERICIN B
     Dosage: UNK
  10. ULCAR [Concomitant]
     Active Substance: SUCRALFATE
     Dosage: UNK
  11. PLITICAN [Concomitant]
     Active Substance: ALIZAPRIDE HYDROCHLORIDE
     Dosage: UNK
  12. BACTRIM [Suspect]
     Active Substance: SULFAMETHOXAZOLE\TRIMETHOPRIM
     Dosage: UNK
  13. ANDROCUR [Concomitant]
     Active Substance: CYPROTERONE ACETATE
     Dosage: UNK
  14. SERESTA [Concomitant]
     Active Substance: OXAZEPAM
     Dosage: UNK

REACTIONS (4)
  - Asthenia [Unknown]
  - Weight decreased [Unknown]
  - Graft versus host disease [Unknown]
  - Dry mouth [Unknown]
